FAERS Safety Report 16579547 (Version 6)
Quarter: 2021Q1

REPORT INFORMATION
  Report Type: Report from Study
  Country: JP (occurrence: JP)
  Receive Date: 20190716
  Receipt Date: 20210212
  Transmission Date: 20210419
  Serious: Yes (Death, Hospitalization, Other)
  Sender: FDA-Public Use
  Company Number: JP-ASTELLAS-2019JP010025

PATIENT
  Age: 61 Year
  Sex: Male

DRUGS (6)
  1. ASP2215 [Suspect]
     Active Substance: GILTERITINIB
     Route: 048
     Dates: start: 20190809, end: 20190827
  2. ASP2215 [Suspect]
     Active Substance: GILTERITINIB
     Route: 048
     Dates: start: 20190924, end: 20191010
  3. ASP2215 [Suspect]
     Active Substance: GILTERITINIB
     Route: 048
     Dates: start: 20190828, end: 20190908
  4. LANSOPRAZOLE. [Concomitant]
     Active Substance: LANSOPRAZOLE
     Indication: PROPHYLAXIS
     Dosage: 10 MG/DAY, UNKNOWN FREQ.
     Route: 048
  5. ASP2215 [Suspect]
     Active Substance: GILTERITINIB
     Indication: ACUTE MYELOID LEUKAEMIA RECURRENT
     Route: 048
     Dates: start: 20190411, end: 20190507
  6. ASP2215 [Suspect]
     Active Substance: GILTERITINIB
     Route: 048
     Dates: start: 20190513, end: 20190518

REACTIONS (8)
  - Neutropenia [Recovered/Resolved]
  - Acute myeloid leukaemia [Fatal]
  - Renal impairment [Recovered/Resolved]
  - Cytopenia [Unknown]
  - Gastrointestinal haemorrhage [Recovered/Resolved]
  - Hepatic function abnormal [Recovered/Resolved]
  - Myelosuppression [Not Recovered/Not Resolved]
  - Electrocardiogram QT prolonged [Recovered/Resolved]

NARRATIVE: CASE EVENT DATE: 20190418
